FAERS Safety Report 21833795 (Version 7)
Quarter: 2025Q4

REPORT INFORMATION
  Report Type: Spontaneous
  Country: EU (occurrence: EU)
  Receive Date: 20230108
  Receipt Date: 20251018
  Transmission Date: 20260117
  Serious: Yes (Life-Threatening, Hospitalization, Other)
  Sender: AUROBINDO
  Company Number: EU-DOCGEN-2205372

PATIENT
  Age: 61 Year
  Sex: Male

DRUGS (15)
  1. LEVOFLOXACIN [Suspect]
     Active Substance: LEVOFLOXACIN
     Indication: Respiratory tract infection
     Dosage: 500 MILLIGRAM, ONCE A DAY
     Route: 048
     Dates: start: 20091129
  2. LEVOFLOXACIN [Suspect]
     Active Substance: LEVOFLOXACIN
     Indication: Bacterial infection
  3. LEVOFLOXACIN [Suspect]
     Active Substance: LEVOFLOXACIN
     Indication: Pyrexia
  4. METFORMIN [Suspect]
     Active Substance: METFORMIN HYDROCHLORIDE
     Indication: Type 2 diabetes mellitus
     Dosage: UNK
     Route: 048
  5. GLYBURIDE\METFORMIN [Suspect]
     Active Substance: GLYBURIDE\METFORMIN
     Indication: Type 2 diabetes mellitus
     Dosage: 400 MG/ 2.5 MG, TWO TIMES A DAY
     Route: 048
  6. NADROPARIN [Suspect]
     Active Substance: NADROPARIN
     Indication: Deep vein thrombosis
     Dosage: 5700 INTERNATIONAL UNIT, ONCE A DAY(5700 IU/DAY)
     Route: 058
  7. HYDROMORPHONE [Suspect]
     Active Substance: HYDROMORPHONE
     Indication: Pain management
     Dosage: 16 MILLIGRAM, ONCE A DAY
     Route: 048
     Dates: start: 20091129
  8. HEPARIN [Concomitant]
     Active Substance: HEPARIN SODIUM
     Indication: Deep vein thrombosis
     Dosage: UNK
     Route: 065
  9. FLUOROURACIL [Concomitant]
     Active Substance: FLUOROURACIL
     Indication: Product used for unknown indication
     Dosage: UNK
     Route: 065
  10. CETUXIMAB [Concomitant]
     Active Substance: CETUXIMAB
     Indication: Product used for unknown indication
     Dosage: UNK
     Route: 065
  11. FAT EMULSION NOS [Concomitant]
     Active Substance: EGG PHOSPHOLIPIDS\SAFFLOWER OIL\SOYBEAN OIL
     Indication: Dysphagia
     Dosage: UNK
     Route: 065
  12. DEXTROSE [Concomitant]
     Active Substance: DEXTROSE MONOHYDRATE
     Indication: Dysphagia
     Dosage: UNK
     Route: 065
  13. AMINO ACIDS [Concomitant]
     Active Substance: AMINO ACIDS
     Indication: Dysphagia
     Dosage: UNK
     Route: 065
  14. Eparina [Concomitant]
     Indication: Product used for unknown indication
     Dosage: UNK
     Route: 065
  15. Idromorfone [Concomitant]
     Indication: Tonsil cancer
     Dosage: UNK
     Route: 065

REACTIONS (5)
  - Unresponsive to stimuli [Recovered/Resolved]
  - Hypoglycaemia [Recovered/Resolved]
  - Inhibitory drug interaction [Recovered/Resolved]
  - Hypoglycaemic coma [Recovered/Resolved]
  - Drug interaction [Recovered/Resolved]
